FAERS Safety Report 5240501-X (Version None)
Quarter: 2007Q1

REPORT INFORMATION
  Report Type: 
  Country: None (occurrence: None)
  Receive Date: 20070219
  Receipt Date: 20070209
  Transmission Date: 20070707
  Serious: Yes (Hospitalization)
  Sender: FDA-Public Use
  Company Number: FR-GLAXOSMITHKLINE-B0457932A

PATIENT
  Age: 70 Year
  Sex: Male
  Weight: 83 kg

DRUGS (10)
  1. AVANDAMET [Suspect]
     Dosage: 1UNIT IN THE MORNING
     Route: 048
  2. ZYLORIC [Concomitant]
     Dosage: 1UNIT IN THE MORNING
     Route: 065
  3. PEGASYS [Concomitant]
     Dosage: 180MCG WEEKLY
     Route: 058
     Dates: start: 20050501, end: 20060401
  4. COPEGUS [Concomitant]
     Dosage: 2UNIT TWICE PER DAY
     Route: 048
     Dates: start: 20050501, end: 20060401
  5. PLAVIX [Concomitant]
     Dosage: 75MG PER DAY
     Route: 065
  6. DIAMICRON [Concomitant]
     Dosage: 30MG IN THE MORNING
     Route: 065
  7. OMIX [Concomitant]
     Dosage: 1UNIT AT NIGHT
     Route: 065
  8. CONTRAMAL [Concomitant]
     Dosage: 100MG TWICE PER DAY
     Route: 065
  9. PRAXILENE [Concomitant]
     Route: 065
  10. COMBIVENT [Concomitant]
     Route: 065

REACTIONS (6)
  - ANGIOTENSIN CONVERTING ENZYME INCREASED [None]
  - BLOOD 25-HYDROXYCHOLECALCIFEROL DECREASED [None]
  - BLOOD PARATHYROID HORMONE DECREASED [None]
  - CREATININE RENAL CLEARANCE DECREASED [None]
  - HYPERCALCAEMIA [None]
  - LIGHT CHAIN ANALYSIS INCREASED [None]
